FAERS Safety Report 13683905 (Version 1)
Quarter: 2017Q2

REPORT INFORMATION
  Report Type: Spontaneous
  Country: US (occurrence: US)
  Receive Date: 20170623
  Receipt Date: 20170623
  Transmission Date: 20170830
  Serious: No
  Sender: FDA-Public Use
  Company Number: US-PFIZER INC-2017271204

PATIENT
  Sex: Male

DRUGS (1)
  1. XELJANZ XR [Suspect]
     Active Substance: TOFACITINIB CITRATE
     Dosage: 11 MG, UNK

REACTIONS (17)
  - Spinal flattening [Unknown]
  - Knee deformity [Unknown]
  - Nodal osteoarthritis [Unknown]
  - Pain in extremity [Unknown]
  - Synovial disorder [Unknown]
  - Joint swelling [Unknown]
  - Joint crepitation [Unknown]
  - Joint range of motion decreased [Unknown]
  - Musculoskeletal pain [Unknown]
  - Finger deformity [Unknown]
  - Metatarsalgia [Unknown]
  - Arthralgia [Unknown]
  - Arthritis [Unknown]
  - Back pain [Unknown]
  - Muscle tightness [Unknown]
  - Hand deformity [Unknown]
  - Bone disorder [Unknown]
